FAERS Safety Report 8830927 (Version 1)
Quarter: 2012Q4

REPORT INFORMATION
  Report Type: Report from Study
  Country: US (occurrence: US)
  Receive Date: 20121009
  Receipt Date: 20121009
  Transmission Date: 20130627
  Serious: Yes (Other)
  Sender: FDA-Public Use
  Company Number: US-009507513-1209USA004505

PATIENT
  Sex: Female

DRUGS (3)
  1. VICTRELIS [Suspect]
     Indication: HEPATITIS C
     Dosage: 4 DF, tid
     Dates: start: 20110820, end: 20120112
  2. PEGASYS [Suspect]
     Indication: HEPATITIS C
     Dosage: 180 Microgram, qw
     Route: 058
     Dates: start: 20110820, end: 20120112
  3. COPEGUS [Suspect]
     Indication: HEPATITIS C
     Dosage: 800 UNK, qd; divided dose
     Route: 048
     Dates: start: 20110820, end: 20120112

REACTIONS (2)
  - Full blood count decreased [Not Recovered/Not Resolved]
  - Ill-defined disorder [Unknown]
